FAERS Safety Report 4410851-5 (Version None)
Quarter: 2004Q3

REPORT INFORMATION
  Report Type: 
  Country: None (occurrence: None)
  Receive Date: 20040729
  Receipt Date: 20031217
  Transmission Date: 20050211
  Serious: Yes (Hospitalization)
  Sender: FDA-Public Use
  Company Number: PHHO2003JP16454

PATIENT
  Age: 52 Year
  Sex: Female

DRUGS (1)
  1. GLEEVEC [Suspect]
     Indication: CHRONIC MYELOID LEUKAEMIA
     Dosage: 400 MG, QD
     Route: 048
     Dates: start: 20030402

REACTIONS (7)
  - BLADDER CANCER [None]
  - BLOOD URINE [None]
  - HAEMATURIA [None]
  - MALIGNANT TUMOUR EXCISION [None]
  - ONYCHOLYSIS [None]
  - TRANSURETHRAL BLADDER RESECTION [None]
  - URINARY INCONTINENCE [None]
